FAERS Safety Report 4796453-X (Version None)
Quarter: 2005Q4

REPORT INFORMATION
  Report Type: 
  Country: None (occurrence: None)
  Receive Date: 20051007
  Receipt Date: 20050930
  Transmission Date: 20060501
  Serious: No
  Sender: FDA-Public Use
  Company Number: 05H-124-0302605-00

PATIENT
  Age: 65 Year
  Sex: Male

DRUGS (1)
  1. ABOCAIN SPINAL INJECTION (BUPIVACAINE HYDROCHLORIDE) [Suspect]
     Indication: ANALGESIC EFFECT
     Dosage: 1.5 CC, ONCE INTERASPINAL
     Dates: start: 20050916, end: 20050916

REACTIONS (5)
  - DISORIENTATION [None]
  - HEADACHE [None]
  - MENINGITIS CHEMICAL [None]
  - MUSCULOSKELETAL STIFFNESS [None]
  - PSYCHOTIC DISORDER [None]
